FAERS Safety Report 5057027-9 (Version None)
Quarter: 2006Q3

REPORT INFORMATION
  Report Type: 
  Country: None (occurrence: None)
  Receive Date: 20060721
  Receipt Date: 20060710
  Transmission Date: 20061208
  Serious: Yes (Hospitalization)
  Sender: FDA-Public Use
  Company Number: PHHO2006US11116

PATIENT
  Age: 62 Year
  Sex: Female

DRUGS (15)
  1. SANDOSTATIN LAR [Suspect]
     Indication: NEUROENDOCRINE CARCINOMA
     Dosage: 30MG EVERY 28 DAYS
     Route: 030
     Dates: start: 20060413, end: 20060703
  2. RAD001 [Suspect]
     Indication: NEUROENDOCRINE CARCINOMA
     Dosage: 10 MG, QD
     Route: 048
     Dates: start: 20060413, end: 20060703
  3. KENALOG [Concomitant]
  4. LASIX [Concomitant]
  5. LEVOTHYROXINE SODIUM [Concomitant]
  6. ASPIRIN [Concomitant]
  7. TOPROL-XL [Concomitant]
  8. NORVASC [Concomitant]
  9. PRILOSEC [Concomitant]
  10. ADVIL [Concomitant]
  11. DULCOLAX [Concomitant]
  12. IMODIUM [Concomitant]
  13. LOMOTIL [Concomitant]
  14. VICODIN [Concomitant]
  15. ALEVE (CAPLET) [Concomitant]

REACTIONS (4)
  - COUGH [None]
  - DIASTOLIC DYSFUNCTION [None]
  - DYSPNOEA EXERTIONAL [None]
  - PNEUMONITIS [None]
